FAERS Safety Report 19001997 (Version 8)
Quarter: 2021Q4

REPORT INFORMATION
  Report Type: Spontaneous
  Country: GB (occurrence: GB)
  Receive Date: 20210312
  Receipt Date: 20211210
  Transmission Date: 20220303
  Serious: Yes (Life-Threatening, Hospitalization, Other)
  Sender: FDA-Public Use
  Company Number: GB-CELGENE-GBR-20210302008

PATIENT
  Age: 55 Year
  Sex: Female

DRUGS (15)
  1. AZACITIDINE [Suspect]
     Active Substance: AZACITIDINE
     Indication: Myelodysplastic syndrome
     Dosage: 75 MILLIGRAM/SQ. METER
     Route: 058
     Dates: start: 20210104, end: 20210216
  2. VENETOCLAX [Suspect]
     Active Substance: VENETOCLAX
     Indication: Myelodysplastic syndrome
     Dosage: 400 MILLIGRAM
     Route: 048
     Dates: start: 20210104, end: 20210221
  3. ONDANSETRON [Concomitant]
     Active Substance: ONDANSETRON
     Indication: Antiemetic supportive care
     Dosage: 16 MILLIGRAM
     Route: 048
     Dates: start: 20210104
  4. METOCLOPRAMIDE [Concomitant]
     Active Substance: METOCLOPRAMIDE
     Indication: Antiemetic supportive care
     Dosage: 30 MILLIGRAM
     Route: 048
     Dates: start: 20210104
  5. ACYCLOVIR [Concomitant]
     Active Substance: ACYCLOVIR
     Indication: Antiviral treatment
     Dosage: 800 MILLIGRAM
     Route: 048
     Dates: start: 20210104
  6. MOVICOL [Concomitant]
     Active Substance: POLYETHYLENE GLYCOL 3350\POTASSIUM CHLORIDE\SODIUM BICARBONATE\SODIUM CHLORIDE
     Indication: Constipation
     Dosage: 13.8 GRAM
     Route: 048
     Dates: start: 20210115
  7. COCODAMOL [Concomitant]
     Active Substance: ACETAMINOPHEN\CODEINE PHOSPHATE
     Indication: Headache
     Dosage: 30/500 MILLIGRAM
     Route: 065
     Dates: start: 20210105
  8. COCODAMOL [Concomitant]
     Active Substance: ACETAMINOPHEN\CODEINE PHOSPHATE
     Indication: Arthralgia
  9. PRIMROSE OIL [Concomitant]
     Indication: Routine health maintenance
     Route: 048
     Dates: start: 20110112
  10. CIPROFLOXACIN [Concomitant]
     Active Substance: CIPROFLOXACIN
     Indication: Neutrophil count decreased
     Dosage: 1000 MILLIGRAM
     Route: 048
     Dates: start: 20210108, end: 20210204
  11. CIPROFLOXACIN [Concomitant]
     Active Substance: CIPROFLOXACIN
     Dosage: 1000 MILLIGRAM
     Route: 048
     Dates: start: 20210208
  12. CHLORHEXIDINE [Concomitant]
     Active Substance: CHLORHEXIDINE
     Indication: Stomatitis
     Dosage: 20 MILLILITER
     Route: 048
     Dates: start: 20210208
  13. DIFFLAM [Concomitant]
     Indication: Stomatitis
     Dosage: 20 MILLIGRAM
     Route: 048
     Dates: start: 20210208
  14. ALLOPURINOL [Concomitant]
     Active Substance: ALLOPURINOL
     Indication: Prophylaxis
     Dosage: 100 MILLIGRAM
     Route: 048
     Dates: start: 20210104
  15. PFIZER-BIONTECH COVID-19 VACCINE [Concomitant]
     Active Substance: TOZINAMERAN
     Indication: Prophylaxis
     Route: 028
     Dates: start: 20210224, end: 20210224

REACTIONS (1)
  - Haemorrhage intracranial [Recovered/Resolved]

NARRATIVE: CASE EVENT DATE: 20210225
